FAERS Safety Report 9922174 (Version 2)
Quarter: 2014Q1

REPORT INFORMATION
  Report Type: Spontaneous
  Country: DE (occurrence: DE)
  Receive Date: 20140225
  Receipt Date: 20140303
  Transmission Date: 20141002
  Serious: Yes (Other)
  Sender: FDA-Public Use
  Company Number: DE-PFIZER INC-2014052959

PATIENT
  Age: 25 Year
  Sex: Female
  Weight: 80 kg

DRUGS (4)
  1. LAMOTRIGINE [Suspect]
     Indication: BIPOLAR DISORDER RELAPSE PROPHYLAXIS
     Dosage: 100 MG, DAILY
     Route: 048
     Dates: start: 20120505, end: 20130124
  2. VENLAFAXINE HCL [Suspect]
     Indication: DEPRESSION
     Dosage: 150 MG, DAILY
     Route: 048
     Dates: start: 20120505, end: 20130124
  3. VOMEX A [Concomitant]
     Indication: VOMITING IN PREGNANCY
     Dosage: UNK
     Route: 048
  4. FOLSAURE [Concomitant]
     Indication: PROPHYLAXIS OF NEURAL TUBE DEFECT
     Dosage: UNK
     Route: 048
     Dates: start: 20120917

REACTIONS (2)
  - Premature rupture of membranes [Unknown]
  - Abnormal labour [Unknown]
